FAERS Safety Report 10008591 (Version 1)
Quarter: 2014Q1

REPORT INFORMATION
  Report Type: Spontaneous
  Country: US (occurrence: US)
  Receive Date: 20140312
  Receipt Date: 20140312
  Transmission Date: 20141002
  Serious: No
  Sender: FDA-Public Use
  Company Number: US-INCYTE CORPORATION-2011IN000358

PATIENT
  Age: 72 Year
  Sex: Male

DRUGS (3)
  1. JAKAFI [Suspect]
     Indication: MYELOFIBROSIS
     Dosage: UNK
     Dates: start: 20111216
  2. PREDNISONE [Concomitant]
  3. SYNTHROID [Concomitant]

REACTIONS (1)
  - Rash erythematous [Unknown]
